FAERS Safety Report 8169923-4 (Version None)
Quarter: 2012Q1

REPORT INFORMATION
  Report Type: 
  Country: None (occurrence: None)
  Receive Date: 20120228
  Receipt Date: 20120228
  Transmission Date: 20120608
  Serious: Yes (Death)
  Sender: FDA-Public Use
  Company Number: None

PATIENT
  Age: 92 Year
  Sex: Female
  Weight: 63.502 kg

DRUGS (1)
  1. PRADAXA [Suspect]
     Indication: HEART RATE IRREGULAR
     Route: 048
     Dates: start: 20110425, end: 20120106

REACTIONS (9)
  - ABDOMINAL DISTENSION [None]
  - DISSEMINATED INTRAVASCULAR COAGULATION [None]
  - PAIN OF SKIN [None]
  - GASTROINTESTINAL MOTILITY DISORDER [None]
  - HAEMATOCHEZIA [None]
  - SKIN DISORDER [None]
  - HEART RATE IRREGULAR [None]
  - CONSTIPATION [None]
  - TOXICITY TO VARIOUS AGENTS [None]
